FAERS Safety Report 25934515 (Version 1)
Quarter: 2025Q4

REPORT INFORMATION
  Report Type: Spontaneous
  Country: PG (occurrence: PG)
  Receive Date: 20251017
  Receipt Date: 20251017
  Transmission Date: 20260117
  Serious: Yes (Other)
  Sender: NOVARTIS
  Company Number: PG-002147023-NVSC2025PG139063

PATIENT
  Age: 15 Year
  Sex: Female
  Weight: 44 kg

DRUGS (3)
  1. GLIVEC [Suspect]
     Active Substance: IMATINIB MESYLATE
     Indication: Chronic myeloid leukaemia
     Dosage: 200 MG (2 X 100MG)
     Route: 065
  2. GLIVEC [Suspect]
     Active Substance: IMATINIB MESYLATE
     Dosage: 300 MG
     Route: 065
  3. GLIVEC [Suspect]
     Active Substance: IMATINIB MESYLATE
     Dosage: 200 MG
     Route: 048
     Dates: start: 2022

REACTIONS (7)
  - Thrombocytopenia [Unknown]
  - Cytogenetic analysis abnormal [Unknown]
  - Splenomegaly [Unknown]
  - White blood cell count abnormal [Unknown]
  - Anaemia [Unknown]
  - Leukocytosis [Unknown]
  - Full blood count abnormal [Unknown]

NARRATIVE: CASE EVENT DATE: 20250821
